FAERS Safety Report 4596499-0 (Version None)
Quarter: 2005Q1

REPORT INFORMATION
  Report Type: 
  Country: None (occurrence: None)
  Receive Date: 20050302
  Receipt Date: 20050215
  Transmission Date: 20050727
  Serious: Yes (Other)
  Sender: FDA-Public Use
  Company Number: US-GLAXOSMITHKLINE-A0545829A

PATIENT
  Age: 62 Year
  Sex: Male
  Weight: 74 kg

DRUGS (2)
  1. PANADOL COLD + FLU CAPLETS [Suspect]
     Route: 048
     Dates: start: 20050210, end: 20050211
  2. ATENOLOL [Concomitant]

REACTIONS (12)
  - ASTHENIA [None]
  - BENIGN PROSTATIC HYPERPLASIA [None]
  - CHILLS [None]
  - DIARRHOEA [None]
  - DYSPNOEA [None]
  - DYSURIA [None]
  - GENITAL BURNING SENSATION [None]
  - HEADACHE [None]
  - PENILE PAIN [None]
  - SKIN IRRITATION [None]
  - URETHRAL STRICTURE [None]
  - URINARY TRACT INFECTION [None]
